FAERS Safety Report 8023787-8 (Version None)
Quarter: 2012Q1

REPORT INFORMATION
  Report Type: 
  Country: None (occurrence: None)
  Receive Date: 20120105
  Receipt Date: 20111227
  Transmission Date: 20120608
  Serious: Yes (Other)
  Sender: FDA-Public Use
  Company Number: US-BAYER-2011-087435

PATIENT
  Age: 19 Year
  Sex: Female
  Weight: 46.712 kg

DRUGS (7)
  1. IBUPROFEN [Concomitant]
     Dosage: UNK
     Dates: start: 20020101
  2. MIRALAX [Concomitant]
     Indication: CONSTIPATION
     Dosage: UNK
     Dates: start: 20090301
  3. YAZ [Suspect]
  4. PHENERGAN [Concomitant]
     Indication: NAUSEA
     Dosage: UNK
     Dates: start: 20090701
  5. YAZ [Suspect]
     Indication: CONTRACEPTION
     Dosage: UNK
     Dates: start: 20080801, end: 20090101
  6. YAZ [Suspect]
     Indication: PREMENSTRUAL SYNDROME
  7. GI COCKTAIL [Concomitant]

REACTIONS (4)
  - CHOLECYSTITIS [None]
  - GALLBLADDER DISORDER [None]
  - CHOLELITHIASIS [None]
  - PAIN [None]
